FAERS Safety Report 13973175 (Version 2)
Quarter: 2017Q3

REPORT INFORMATION
  Report Type: Spontaneous
  Country: DE (occurrence: DE)
  Receive Date: 20170914
  Receipt Date: 20170915
  Transmission Date: 20171128
  Serious: Yes (Hospitalization)
  Sender: FDA-Public Use
  Company Number: DE-JNJFOC-20170905539

PATIENT
  Age: 5 Decade
  Sex: Male
  Weight: 75 kg

DRUGS (2)
  1. REGAINE MAENNER LOESUNG [Suspect]
     Active Substance: MINOXIDIL
     Indication: ANDROGENETIC ALOPECIA
     Route: 061
  2. REGAINE MAENNER LOESUNG [Suspect]
     Active Substance: MINOXIDIL
     Route: 061

REACTIONS (1)
  - Condition aggravated [Recovered/Resolved]

NARRATIVE: CASE EVENT DATE: 201608
